FAERS Safety Report 10875403 (Version 4)
Quarter: 2015Q2

REPORT INFORMATION
  Report Type: Spontaneous
  Country: IT (occurrence: IT)
  Receive Date: 20150227
  Receipt Date: 20150407
  Transmission Date: 20150821
  Serious: Yes (Death, Hospitalization, Other)
  Sender: FDA-Public Use
  Company Number: IT-GILEAD-2015-0139494

PATIENT
  Age: 70 Year
  Sex: Female
  Weight: 95 kg

DRUGS (3)
  1. RIBAVIRINE [Suspect]
     Active Substance: RIBAVIRIN
     Indication: HEPATITIS C
     Dosage: 600 MG, UNK
     Route: 048
     Dates: start: 20150130, end: 20150217
  2. ALBUMIN [Suspect]
     Active Substance: ALBUMIN (HUMAN)
     Indication: HAEMODYNAMIC INSTABILITY
     Dosage: 1 DF, UNK
     Route: 042
     Dates: start: 20140615, end: 20150217
  3. SOVALDI [Suspect]
     Active Substance: SOFOSBUVIR
     Indication: HEPATITIS C
     Dosage: 1 DF, UNK
     Route: 048
     Dates: start: 20150130, end: 20150217

REACTIONS (7)
  - Chills [Not Recovered/Not Resolved]
  - Multi-organ failure [Fatal]
  - Pyrexia [Not Recovered/Not Resolved]
  - Septic shock [Fatal]
  - Cholecystitis infective [Fatal]
  - Urinary tract infection [Fatal]
  - Disseminated intravascular coagulation [Unknown]

NARRATIVE: CASE EVENT DATE: 20150217
